FAERS Safety Report 10160543 (Version 2)
Quarter: 2014Q2

REPORT INFORMATION
  Report Type: Spontaneous
  Country: GB (occurrence: GB)
  Receive Date: 20140508
  Receipt Date: 20140508
  Transmission Date: 20141212
  Serious: Yes (Other)
  Sender: FDA-Public Use
  Company Number: PHFR2013GB005896

PATIENT
  Sex: Female

DRUGS (11)
  1. TEGRETOL [Suspect]
     Indication: MUSCULOSKELETAL STIFFNESS
     Dosage: 200 MG, BID
  2. TEGRETOL [Suspect]
     Indication: FIBROMYALGIA
     Dosage: TINY DOSE
  3. TEGRETOL [Suspect]
     Indication: MYOKYMIA
     Dosage: UNK UKN, (QUARTER OF TABET IN MORNING AND AGAIN IN EVENING ON DAY 1)
  4. TEGRETOL [Suspect]
     Dosage: HALF OF THE TABLET IN THE MORNING AND AGAIN IN EVENING
  5. TEGRETOL [Suspect]
     Dosage: THREE QUARTERS OF THE TABLET IN THE MORNING AND AGAIN IN EVENING
  6. TEGRETOL [Suspect]
     Dosage: WHOLE TABLET IN MORNING AND WOULD TOOK AGAIN IN EVENING
  7. DIAZEPAM [Concomitant]
     Dosage: UNK UKN, (5 AND QUARTER MG IN 24 HRS EVERY SIX HOURS)
  8. GAVISCON [Concomitant]
     Indication: GASTROINTESTINAL DISORDER
     Dosage: UNK UKN, UNK
  9. MEGADOPHILUS [Concomitant]
     Dosage: UNK UKN, UNK
  10. MEBEVERINE [Concomitant]
     Indication: IRRITABLE BOWEL SYNDROME
     Dosage: UNK UKN, UNK
  11. CO DYDRAMOL [Concomitant]
     Dosage: UNK UKN, UNK

REACTIONS (18)
  - Diabetic neuropathy [Unknown]
  - Dysarthria [Unknown]
  - Feeling abnormal [Unknown]
  - Blood thyroid stimulating hormone increased [Unknown]
  - Emotional disorder [Unknown]
  - Balance disorder [Unknown]
  - Impulse-control disorder [Unknown]
  - Restless legs syndrome [Recovered/Resolved]
  - Somnolence [Unknown]
  - Dyskinesia [Unknown]
  - Constipation [Unknown]
  - Headache [Unknown]
  - Fibromyalgia [Not Recovered/Not Resolved]
  - Musculoskeletal stiffness [Unknown]
  - Condition aggravated [Unknown]
  - Rash [Unknown]
  - Pruritus [Unknown]
  - Incorrect dose administered [Unknown]
